FAERS Safety Report 9390393 (Version 7)
Quarter: 2014Q3

REPORT INFORMATION
  Report Type: Spontaneous
  Country: US (occurrence: None)
  Receive Date: 20130701
  Receipt Date: 20140730
  Transmission Date: 20150326
  Serious: Yes (Congenital Anomaly, Other)
  Sender: FDA-Public Use
  Company Number: KAD201306-000760

PATIENT
  Age: 14 Month
  Sex: Female
  Weight: 11.51 kg

DRUGS (4)
  1. ALBUTEROL. [Suspect]
     Active Substance: ALBUTEROL
     Indication: ASTHMA
  2. PRENATAL VITAMINS [Suspect]
     Active Substance: VITAMINS
     Indication: PREGNANCY
  3. PEGASYS [Suspect]
     Active Substance: PEGINTERFERON ALFA-2A
     Indication: HEPATITIS C
     Dates: end: 201205
  4. RIBAVIRIN. [Suspect]
     Active Substance: RIBAVIRIN
     Indication: HEPATITIS C
     Dates: end: 201205

REACTIONS (9)
  - Vomiting [None]
  - Atrial septal defect [None]
  - Maternal drugs affecting foetus [None]
  - Foetal exposure during pregnancy [None]
  - Protrusion tongue [None]
  - Congenital arterial malformation [None]
  - Jaundice neonatal [None]
  - Exposure to communicable disease [None]
  - Caesarean section [None]

NARRATIVE: CASE EVENT DATE: 20130328
